FAERS Safety Report 7778206-3 (Version None)
Quarter: 2011Q3

REPORT INFORMATION
  Report Type: 
  Country: None (occurrence: None)
  Receive Date: 20110926
  Receipt Date: 20110921
  Transmission Date: 20111222
  Serious: Yes (Disabling)
  Sender: FDA-Public Use
  Company Number: GB-MERCK-1109GBR00118

PATIENT
  Age: 42 Year
  Sex: Female
  Weight: 67 kg

DRUGS (2)
  1. NARATRIPTAN HYDROCHLORIDE (AMERGE) [Suspect]
     Route: 065
     Dates: start: 20110902, end: 20110903
  2. MAXALT [Suspect]
     Route: 048
     Dates: start: 20110830, end: 20110905

REACTIONS (7)
  - FLUSHING [None]
  - VOMITING [None]
  - RASH [None]
  - EYE SWELLING [None]
  - SWELLING FACE [None]
  - PYREXIA [None]
  - MALAISE [None]
